FAERS Safety Report 5786574-7 (Version None)
Quarter: 2008Q2

REPORT INFORMATION
  Report Type: 
  Country: None (occurrence: None)
  Receive Date: 20080624
  Receipt Date: 20080612
  Transmission Date: 20081010
  Serious: Yes (Hospitalization, Congenital Anomaly, Other)
  Sender: FDA-Public Use
  Company Number: US-PFIZER INC-2008049851

PATIENT
  Sex: Female

DRUGS (1)
  1. ZOLOFT [Suspect]
     Indication: DEPRESSION
     Route: 048

REACTIONS (12)
  - ABDOMINAL PAIN [None]
  - CLEFT LIP AND PALATE [None]
  - CONSTIPATION [None]
  - CRANIOSYNOSTOSIS [None]
  - DRUG EXPOSURE DURING PREGNANCY [None]
  - EAR INFECTION [None]
  - FINE MOTOR DELAY [None]
  - GASTROOESOPHAGEAL REFLUX DISEASE [None]
  - MILD MENTAL RETARDATION [None]
  - MIXED RECEPTIVE-EXPRESSIVE LANGUAGE DISORDER [None]
  - PERINATAL BRAIN DAMAGE [None]
  - WEIGHT GAIN POOR [None]
